FAERS Safety Report 9373038 (Version 1)
Quarter: 2013Q2

REPORT INFORMATION
  Report Type: Spontaneous
  Country: US (occurrence: US)
  Receive Date: 20130627
  Receipt Date: 20130627
  Transmission Date: 20140414
  Serious: No
  Sender: FDA-Public Use
  Company Number: US-BAYER-2013-079215

PATIENT
  Age: 37 Year
  Sex: Female
  Weight: 63 kg

DRUGS (2)
  1. ALEVE TABLET [Suspect]
     Indication: PAIN
     Dosage: 1 DF, ONCE
     Route: 048
     Dates: start: 20130618
  2. ALEVE TABLET [Suspect]
     Indication: NASOPHARYNGITIS

REACTIONS (1)
  - Swelling face [Recovered/Resolved]
